FAERS Safety Report 12837478 (Version 2)
Quarter: 2016Q4

REPORT INFORMATION
  Report Type: Spontaneous
  Country: US (occurrence: US)
  Receive Date: 20161011
  Receipt Date: 20161014
  Transmission Date: 20170207
  Serious: Yes (Other)
  Sender: FDA-Public Use
  Company Number: US-ROCHE-1840935

PATIENT
  Age: 81 Year
  Sex: Male

DRUGS (1)
  1. ESBRIET [Suspect]
     Active Substance: PIRFENIDONE
     Indication: IDIOPATHIC PULMONARY FIBROSIS
     Route: 048
     Dates: start: 20160613

REACTIONS (4)
  - Abdominal discomfort [Unknown]
  - Rash pruritic [Unknown]
  - Cough [Unknown]
  - Somnolence [Unknown]

NARRATIVE: CASE EVENT DATE: 20160614
